FAERS Safety Report 8992155 (Version 1)
Quarter: 2012Q4

REPORT INFORMATION
  Report Type: Report from Study
  Country: CA (occurrence: CA)
  Receive Date: 20121231
  Receipt Date: 20121231
  Transmission Date: 20130627
  Serious: Yes (Death, Hospitalization, Other)
  Sender: FDA-Public Use
  Company Number: CA-ROCHE-1173114

PATIENT
  Age: 65 Year
  Sex: Male
  Weight: 73.58 kg

DRUGS (20)
  1. OMALIZUMAB [Suspect]
     Indication: ASTHMA
     Dosage: 225 mg, Q2W
     Route: 058
     Dates: start: 20060406
  2. OMALIZUMAB [Suspect]
     Dosage: 225 mg, Q2W
     Route: 058
     Dates: start: 20100204
  3. OMALIZUMAB [Suspect]
     Dosage: UNK
     Route: 058
     Dates: start: 20110429, end: 20111031
  4. METFORMIN [Concomitant]
  5. LOSEC (CANADA) [Concomitant]
  6. LASIX [Concomitant]
  7. MICARDIS [Concomitant]
  8. EZETROL [Concomitant]
  9. SINGULAIR [Concomitant]
  10. COUMADINE [Concomitant]
  11. CRESTOR [Concomitant]
  12. NITRODUR [Concomitant]
  13. PREDNISONE [Concomitant]
  14. SPIRIVA [Concomitant]
  15. ADVAIR [Concomitant]
  16. FOSAVANCE [Concomitant]
  17. DIGOXIN [Concomitant]
  18. PRIMIDONE [Concomitant]
  19. VERAPAMIL [Concomitant]
  20. ASPIRIN [Concomitant]
     Route: 065

REACTIONS (18)
  - Death [Fatal]
  - Myocardial infarction [Not Recovered/Not Resolved]
  - Dyspnoea [Unknown]
  - Pneumonia [Recovered/Resolved]
  - Atrial fibrillation [Recovered/Resolved]
  - Asthma [Recovering/Resolving]
  - Angina pectoris [Recovering/Resolving]
  - Cardiac disorder [Recovered/Resolved]
  - Sepsis [Recovering/Resolving]
  - Upper gastrointestinal haemorrhage [Recovering/Resolving]
  - Pharyngitis [Unknown]
  - Wheezing [Recovering/Resolving]
  - Sinusitis [Unknown]
  - Cough [Unknown]
  - Malaise [Unknown]
  - Fall [Unknown]
  - Nasopharyngitis [Unknown]
  - Periarthritis [Unknown]
